FAERS Safety Report 18011779 (Version 1)
Quarter: 2020Q3

REPORT INFORMATION
  Report Type: Spontaneous
  Country: GB (occurrence: GB)
  Receive Date: 20200713
  Receipt Date: 20200713
  Transmission Date: 20201103
  Serious: Yes (Other)
  Sender: FDA-Public Use
  Company Number: GB-SUN PHARMACEUTICAL INDUSTRIES LTD-2020RR-253155

PATIENT
  Age: 26 Year
  Sex: Female
  Weight: 60 kg

DRUGS (4)
  1. ISOTRETINOIN. [Suspect]
     Active Substance: ISOTRETINOIN
     Dosage: 20MG FIRST 2 MONTHS, 40MG 3RD MONTH, 60MG FINAL 3 MONTHS
     Route: 048
     Dates: start: 20191226, end: 202001
  2. ISOTRETINOIN. [Suspect]
     Active Substance: ISOTRETINOIN
     Dosage: 20MG FIRST 2 MONTHS, 40MG 3RD MONTH, 60MG FINAL 3 MONTHS
     Route: 048
     Dates: start: 202003, end: 202003
  3. ISOTRETINOIN. [Suspect]
     Active Substance: ISOTRETINOIN
     Indication: ACNE
     Dosage: 20MG FIRST 2 MONTHS, 40MG 3RD MONTH, 60MG FINAL 3 MONTHS
     Route: 048
     Dates: start: 202003, end: 20200613
  4. CETIRIZINE DIHYDROCHLORIDE [Concomitant]
     Active Substance: CETIRIZINE HYDROCHLORIDE
     Indication: PRODUCT USED FOR UNKNOWN INDICATION
     Dosage: ()
     Route: 065

REACTIONS (10)
  - Conjunctivitis [Recovering/Resolving]
  - Cough [Not Recovered/Not Resolved]
  - Anaemia [Recovered/Resolved]
  - Eczema [Not Recovered/Not Resolved]
  - Epistaxis [Not Recovered/Not Resolved]
  - Lip dry [Not Recovered/Not Resolved]
  - Dermatitis allergic [Recovered/Resolved]
  - Sinus headache [Recovered/Resolved]
  - Dry eye [Not Recovered/Not Resolved]
  - Muscle spasms [Recovering/Resolving]
